FAERS Safety Report 16259373 (Version 1)
Quarter: 2019Q2

REPORT INFORMATION
  Report Type: Report from Study
  Country: DE (occurrence: DE)
  Receive Date: 20190501
  Receipt Date: 20190501
  Transmission Date: 20190711
  Serious: Yes (Death, Hospitalization, Other)
  Sender: FDA-Public Use
  Company Number: DE-ACCORD-124769

PATIENT
  Age: 76 Year
  Sex: Female

DRUGS (6)
  1. BEVACIZUMAB. [Suspect]
     Active Substance: BEVACIZUMAB
     Indication: COLORECTAL CANCER METASTATIC
     Dosage: ALSO RECEIVED 340 MG FROM 29-SEP-2015, 510 MG FROM 30-NOV-2015, 500 FROM 17-JUN-2015.
     Route: 042
     Dates: start: 20141216
  2. FOLINIC ACID [Concomitant]
     Active Substance: LEUCOVORIN
     Indication: COLORECTAL CANCER
     Dosage: DATE OF LAST DOSE PRIOR TO SAE: 24/MAR/2015
     Route: 042
     Dates: start: 20141216, end: 20150929
  3. OXALIPLATIN. [Concomitant]
     Active Substance: OXALIPLATIN
     Indication: COLORECTAL CANCER
     Route: 042
     Dates: start: 20151204
  4. FLUOROURACIL. [Concomitant]
     Active Substance: FLUOROURACIL
     Indication: COLORECTAL CANCER
     Dosage: DATE OF LAST DOSE PRIOR TO SAE: 24/MAR/2015, ALSO RECEIVED 4250 MG
     Route: 040
     Dates: start: 20141216, end: 20150929
  5. CAPECITABINE. [Suspect]
     Active Substance: CAPECITABINE
     Indication: COLORECTAL CANCER
     Dosage: ALSO RECEIVED 3000 MG FROM 20-OCT-2015 TO 13-DEC-2015, 3500 MG FROM 05-MAY-2015 TO 18-MAY-2015.
     Route: 048
     Dates: start: 20150529, end: 20150921
  6. IRINOTECAN [Concomitant]
     Active Substance: IRINOTECAN
     Indication: COLORECTAL CANCER
     Dosage: DATE OF LAST DOSE PRIOR TO SAE: 24/MAR/2015
     Route: 042
     Dates: start: 20141216, end: 20150420

REACTIONS (6)
  - Hypertensive crisis [Recovered/Resolved]
  - Cholangitis [Unknown]
  - Diarrhoea [Recovering/Resolving]
  - Sepsis [Fatal]
  - Subclavian vein thrombosis [Recovering/Resolving]
  - Humerus fracture [Recovering/Resolving]

NARRATIVE: CASE EVENT DATE: 20150720
